FAERS Safety Report 7480670-4 (Version None)
Quarter: 2011Q2

REPORT INFORMATION
  Report Type: 
  Country: None (occurrence: None)
  Receive Date: 20110516
  Receipt Date: 20110506
  Transmission Date: 20111010
  Serious: Yes (Other)
  Sender: FDA-Public Use
  Company Number: US-JNJFOC-20110504396

PATIENT
  Sex: Female
  Weight: 56.7 kg

DRUGS (2)
  1. LEVAQUIN [Suspect]
     Indication: SINUSITIS
     Route: 048
     Dates: start: 20110428, end: 20110430
  2. BIRTH CONTROL PILLS [Concomitant]
     Indication: CONTRACEPTION
     Route: 048
     Dates: start: 20090101

REACTIONS (3)
  - MUSCLE SPASMS [None]
  - ABASIA [None]
  - PHOTOPHOBIA [None]
